FAERS Safety Report 20245087 (Version 2)
Quarter: 2022Q1

REPORT INFORMATION
  Report Type: Spontaneous
  Country: AR (occurrence: AR)
  Receive Date: 20211229
  Receipt Date: 20220201
  Transmission Date: 20220424
  Serious: Yes (Other)
  Sender: FDA-Public Use
  Company Number: AR-PFIZER INC-202101804004

PATIENT
  Age: 71 Year
  Sex: Female

DRUGS (1)
  1. ENBREL [Suspect]
     Active Substance: ETANERCEPT
     Indication: Rheumatoid arthritis
     Dosage: 25 MG, 2X/WEEK
     Route: 065
     Dates: start: 20080701

REACTIONS (7)
  - Corneal transplant [Unknown]
  - Fuchs^ syndrome [Unknown]
  - Gait disturbance [Unknown]
  - Visual impairment [Unknown]
  - Drug intolerance [Unknown]
  - Product supply issue [Unknown]
  - Bone density decreased [Unknown]
